FAERS Safety Report 7544012-8 (Version None)
Quarter: 2011Q2

REPORT INFORMATION
  Report Type: 
  Country: None (occurrence: None)
  Receive Date: 20110613
  Receipt Date: 20040922
  Transmission Date: 20111010
  Serious: Yes (Death)
  Sender: FDA-Public Use
  Company Number: PHHO2004JP12538

PATIENT
  Sex: Male
  Weight: 52 kg

DRUGS (3)
  1. WARFARIN SODIUM [Suspect]
     Indication: CARDIAC VALVE DISEASE
     Dosage: 2 MG, UNK
     Route: 048
     Dates: start: 20030301, end: 20030816
  2. DIOVAN [Suspect]
     Indication: HYPERTENSION
     Dosage: 80 MG / DAY
     Route: 048
     Dates: start: 20030301, end: 20030816
  3. ADALAT [Concomitant]
     Dates: start: 20030301

REACTIONS (1)
  - SUDDEN DEATH [None]
